FAERS Safety Report 5857107-1 (Version None)
Quarter: 2008Q3

REPORT INFORMATION
  Report Type: 
  Country: None (occurrence: None)
  Receive Date: 20080825
  Receipt Date: 20080425
  Transmission Date: 20090109
  Serious: No
  Sender: FDA-Public Use
  Company Number: A0724854A

PATIENT
  Sex: Male

DRUGS (2)
  1. BEXXAR [Suspect]
     Indication: DRUG USE FOR UNKNOWN INDICATION
     Route: 042
  2. UNKNOWN [Concomitant]

REACTIONS (1)
  - DRUG ADMINISTERED AT INAPPROPRIATE SITE [None]
